FAERS Safety Report 7716387-8 (Version None)
Quarter: 2011Q3

REPORT INFORMATION
  Report Type: 
  Country: None (occurrence: None)
  Receive Date: 20110829
  Receipt Date: 20110823
  Transmission Date: 20111222
  Serious: Yes (Hospitalization)
  Sender: FDA-Public Use
  Company Number: DE-MERCK-1107DEU00067

PATIENT
  Age: 80 Year
  Sex: Female

DRUGS (4)
  1. JANUVIA [Suspect]
     Indication: TYPE 2 DIABETES MELLITUS
     Route: 048
     Dates: end: 20110101
  2. BENSERAZIDE HYDROCHLORIDE AND LEVODOPA [Concomitant]
     Indication: PARKINSON'S DISEASE
     Route: 048
  3. CARBIDOPA AND ENTACAPONE AND LEVODOPA [Concomitant]
     Indication: PARKINSON'S DISEASE
     Route: 048
  4. METFORMIN [Concomitant]
     Indication: TYPE 2 DIABETES MELLITUS
     Route: 048

REACTIONS (4)
  - PULMONARY EMBOLISM [None]
  - NAUSEA [None]
  - VOMITING [None]
  - DECREASED APPETITE [None]
